FAERS Safety Report 7202851-7 (Version None)
Quarter: 2010Q4

REPORT INFORMATION
  Report Type: 
  Country: None (occurrence: None)
  Receive Date: 20101130
  Receipt Date: 20101115
  Transmission Date: 20110411
  Serious: Yes (Hospitalization)
  Sender: FDA-Public Use
  Company Number: 2010026779

PATIENT
  Sex: Male

DRUGS (2)
  1. PRIVIGEN [Suspect]
     Dosage: 25 G QD, PRIVIGEN 10% INTRAVENOUS
     Route: 042
     Dates: start: 20101025, end: 20101025
  2. AVELOX [Concomitant]

REACTIONS (5)
  - DEHYDRATION [None]
  - NAUSEA [None]
  - SINUSITIS [None]
  - VISUAL IMPAIRMENT [None]
  - VOMITING [None]
